FAERS Safety Report 8066641-8 (Version None)
Quarter: 2012Q1

REPORT INFORMATION
  Report Type: 
  Country: None (occurrence: None)
  Receive Date: 20120124
  Receipt Date: 20120118
  Transmission Date: 20120608
  Serious: Yes (Death)
  Sender: FDA-Public Use
  Company Number: US-PFIZER INC-2011299511

PATIENT
  Sex: Male

DRUGS (3)
  1. XANAX [Suspect]
     Dosage: UNK
  2. NAPROXEN [Suspect]
     Dosage: UNK
  3. METHADONE HCL [Suspect]
     Dosage: UNK
     Dates: end: 20100515

REACTIONS (3)
  - CARDIOMEGALY [None]
  - TOXICITY TO VARIOUS AGENTS [None]
  - SPLENOMEGALY [None]
